FAERS Safety Report 7202018-2 (Version None)
Quarter: 2010Q4

REPORT INFORMATION
  Report Type: 
  Country: None (occurrence: None)
  Receive Date: 20101229
  Receipt Date: 20101221
  Transmission Date: 20110411
  Serious: Yes (Death, Life-Threatening, Hospitalization)
  Sender: FDA-Public Use
  Company Number: US-AMGEN-USASP2010001503

PATIENT

DRUGS (3)
  1. NEUPOGEN [Suspect]
     Indication: CHEMOTHERAPY
     Dosage: UNK, QD
     Route: 058
     Dates: start: 19910812, end: 19910823
  2. FLUDARABINE [Concomitant]
  3. CIPROFLOXACIN [Concomitant]
     Dosage: UNK
     Dates: start: 19910812, end: 19910822

REACTIONS (4)
  - PULMONARY EMBOLISM [None]
  - PULMONARY HAEMORRHAGE [None]
  - PURPURA [None]
  - THROMBOCYTOPENIA [None]
